FAERS Safety Report 19082812 (Version 1)
Quarter: 2021Q2

REPORT INFORMATION
  Report Type: Spontaneous
  Country: BR (occurrence: BR)
  Receive Date: 20210401
  Receipt Date: 20210401
  Transmission Date: 20210717
  Serious: Yes (Life-Threatening)
  Sender: FDA-Public Use
  Company Number: BR-AMERICAN REGENT INC-2021000768

PATIENT
  Age: 35 Year
  Sex: Male

DRUGS (2)
  1. VENOFER [Suspect]
     Active Substance: IRON SUCROSE
     Indication: ANAEMIA
     Dosage: 2 ML, 1 IN 1 WK (FOR 10 WEEKS)
     Route: 042
  2. VENOFER [Suspect]
     Active Substance: IRON SUCROSE
     Dosage: 2 ML, 1 IN 1 WK
     Route: 042

REACTIONS (5)
  - Hyperhidrosis [Unknown]
  - Renal pain [Recovered/Resolved]
  - Adverse reaction [Unknown]
  - Burning sensation [Unknown]
  - Chest pain [Unknown]

NARRATIVE: CASE EVENT DATE: 202003
